FAERS Safety Report 8481201-2 (Version None)
Quarter: 2012Q3

REPORT INFORMATION
  Report Type: 
  Country: None (occurrence: None)
  Receive Date: 20120702
  Receipt Date: 20120629
  Transmission Date: 20120928
  Serious: Yes (Life-Threatening, Hospitalization, Other)
  Sender: FDA-Public Use
  Company Number: PHHY2012CZ055894

PATIENT
  Age: 60 Year
  Sex: Female

DRUGS (14)
  1. MYKOFUNGIN [Concomitant]
  2. ASPARAGINASE [Concomitant]
     Dates: start: 20120625
  3. OMEPRAZOLE [Concomitant]
  4. TORECAN [Concomitant]
  5. TPN [Concomitant]
  6. VINCRISTINE [Concomitant]
     Dates: start: 20120625
  7. PIPERACILLIN AND TAZOBACTAM [Concomitant]
  8. DEGAN [Concomitant]
  9. IMATINIB MESYLATE [Suspect]
     Indication: ACUTE LYMPHOCYTIC LEUKAEMIA
     Dosage: 600 MG, DAILY
     Dates: start: 20120611, end: 20120629
  10. SULFAMETHOXAZOLE AND TRIMETHOPRIM [Concomitant]
  11. ZOLOFT [Concomitant]
  12. DEXAMETHASONE [Concomitant]
  13. CYCLOPHOSPHAMIDE [Concomitant]
  14. PITOFENONE [Concomitant]

REACTIONS (8)
  - FULL BLOOD COUNT DECREASED [None]
  - PLATELET COUNT DECREASED [None]
  - BRAIN OEDEMA [None]
  - INTRACRANIAL PRESSURE INCREASED [None]
  - CEREBRAL HYGROMA [None]
  - HEADACHE [None]
  - FLUID RETENTION [None]
  - GASTROINTESTINAL DISORDER [None]
